FAERS Safety Report 6855490-1 (Version None)
Quarter: 2010Q3

REPORT INFORMATION
  Report Type: 
  Country: None (occurrence: None)
  Receive Date: 20100719
  Receipt Date: 20100706
  Transmission Date: 20110219
  Serious: Yes (Other)
  Sender: FDA-Public Use
  Company Number: US-JNJFOC-20100401519

PATIENT
  Sex: Male
  Weight: 60.33 kg

DRUGS (8)
  1. DURAGESIC-100 [Suspect]
     Indication: INFLAMMATION
     Dosage: 75UG/HR, 2 PATCHES
     Route: 062
  2. DURAGESIC-100 [Suspect]
     Route: 062
  3. DURAGESIC-100 [Suspect]
     Route: 062
  4. DURAGESIC-100 [Suspect]
     Indication: PAIN
     Route: 062
  5. DURAGESIC-100 [Suspect]
     Dosage: 75UG/HR, 2 PATCHES
     Route: 062
  6. DURAGESIC-100 [Suspect]
     Route: 062
  7. PERCOCET [Concomitant]
     Indication: PAIN
     Route: 048
  8. VALIUM [Concomitant]
     Indication: PAIN
     Route: 048

REACTIONS (10)
  - ABDOMINAL DISCOMFORT [None]
  - ABDOMINAL PAIN UPPER [None]
  - CONSTIPATION [None]
  - DRUG INEFFECTIVE [None]
  - FEELING OF BODY TEMPERATURE CHANGE [None]
  - INADEQUATE ANALGESIA [None]
  - LOSS OF CONSCIOUSNESS [None]
  - OVERDOSE [None]
  - PAIN [None]
  - PRODUCT ADHESION ISSUE [None]
